FAERS Safety Report 10141801 (Version 1)
Quarter: 2014Q2

REPORT INFORMATION
  Report Type: Report from Study
  Country: US (occurrence: US)
  Receive Date: 20140429
  Receipt Date: 20140429
  Transmission Date: 20141212
  Serious: Yes (Hospitalization)
  Sender: FDA-Public Use
  Company Number: PHEH2014US008152

PATIENT
  Age: 33 Year
  Sex: Male

DRUGS (1)
  1. TOBI [Suspect]
     Indication: ENCEPHALOPATHY
     Dosage: 300 MG/ 5 ML, BID, TWICE A DAY
     Route: 055

REACTIONS (2)
  - Pneumonia [Unknown]
  - Dyspnoea [Unknown]
